FAERS Safety Report 4367693-9 (Version None)
Quarter: 2004Q2

REPORT INFORMATION
  Report Type: 
  Country: None (occurrence: None)
  Receive Date: 20040526
  Receipt Date: 20040323
  Transmission Date: 20050107
  Serious: No
  Sender: FDA-Public Use
  Company Number: 2004US002057

PATIENT
  Age: 42 Year
  Sex: Female
  Weight: 116.6 kg

DRUGS (11)
  1. ALOXI [Suspect]
     Indication: PROPHYLAXIS OF NAUSEA AND VOMITING
     Dosage: 0.25 MG, SINGLE, INTRAVENOUS
     Route: 042
     Dates: start: 20040123, end: 20040123
  2. ADRIAMYCIN PFS [Concomitant]
  3. ZANTAC [Concomitant]
  4. PULMICORT [Concomitant]
  5. RHINOCORT [Concomitant]
  6. AMBIEN [Concomitant]
  7. ATIVAN [Concomitant]
  8. PRENATAL (ASCORBIC ACID, CALCIUM GLUCONATE, CUPRIC CARBONATE, BASIC, R [Concomitant]
  9. TESSALON [Concomitant]
  10. COMPAZINE [Concomitant]
  11. ZIRTEK (CETIRIZINE HYDROCHLORIDE) [Concomitant]

REACTIONS (1)
  - HEADACHE [None]
